FAERS Safety Report 9080345 (Version 1)
Quarter: 2013Q1

REPORT INFORMATION
  Report Type: Spontaneous
  Country: US (occurrence: US)
  Receive Date: 20130130
  Receipt Date: 20130130
  Transmission Date: 20140127
  Serious: No
  Sender: FDA-Public Use
  Company Number: US-ABBOTT-12P-163-0975486-00

PATIENT
  Sex: Female
  Weight: 54.03 kg

DRUGS (7)
  1. HUMIRA [Suspect]
     Route: 058
     Dates: start: 2005
  2. UNKNOWN MEDICATION [Concomitant]
     Indication: PAIN
  3. UNKNOWN MEDICATION [Concomitant]
     Indication: GASTROOESOPHAGEAL REFLUX DISEASE
  4. METHOTREXATE [Concomitant]
     Indication: RHEUMATOID ARTHRITIS
  5. IRON [Concomitant]
     Indication: MINERAL SUPPLEMENTATION
  6. UNKNOWN MEDICATION [Concomitant]
     Indication: HYPERSENSITIVITY
  7. UNKNOWN MEDICATION [Concomitant]
     Indication: SINUS DISORDER

REACTIONS (2)
  - Musculoskeletal stiffness [Not Recovered/Not Resolved]
  - Sinusitis [Recovered/Resolved]
